FAERS Safety Report 5285119-8 (Version None)
Quarter: 2007Q2

REPORT INFORMATION
  Report Type: 
  Country: None (occurrence: None)
  Receive Date: 20070403
  Receipt Date: 20070322
  Transmission Date: 20071010
  Serious: Yes (Hospitalization, Other)
  Sender: FDA-Public Use
  Company Number: US-PFIZER INC-2005086369

PATIENT
  Sex: Female

DRUGS (19)
  1. NEURONTIN [Suspect]
     Indication: NEUROPATHY PERIPHERAL
     Route: 048
  2. NEURONTIN [Suspect]
     Indication: MIGRAINE
  3. NEURONTIN [Suspect]
     Indication: RESTLESS LEGS SYNDROME
  4. NEURONTIN [Suspect]
     Indication: DEPRESSION
  5. OXYCONTIN [Suspect]
     Indication: PAIN
  6. AMBIEN [Suspect]
     Indication: INSOMNIA
     Route: 048
  7. DOXYCYCLINE HYDROCHLORIDE [Suspect]
  8. SONATA [Suspect]
  9. ENDOCET [Suspect]
  10. FLEXERIL [Concomitant]
  11. PERCOCET [Concomitant]
     Indication: PAIN
     Route: 048
  12. MEDROL [Concomitant]
     Indication: RADICULOPATHY
  13. OXYIR [Concomitant]
     Indication: PAIN
  14. MS CONTIN [Concomitant]
     Indication: PAIN
  15. MSIR [Concomitant]
     Indication: PAIN
     Dates: start: 20010801
  16. FIORINAL W/CODEINE [Concomitant]
  17. HALCION [Concomitant]
  18. ZANAFLEX [Concomitant]
     Route: 048
  19. TRICYCLIC ANTIDEPRESSANTS [Concomitant]

REACTIONS (3)
  - DRUG INEFFECTIVE [None]
  - MULTIPLE DRUG OVERDOSE [None]
  - SUICIDE ATTEMPT [None]
